FAERS Safety Report 4376866-0 (Version None)
Quarter: 2004Q2

REPORT INFORMATION
  Report Type: 
  Country: None (occurrence: None)
  Receive Date: 20040608
  Receipt Date: 20030618
  Transmission Date: 20050107
  Serious: Yes (Other)
  Sender: FDA-Public Use
  Company Number: 200311971BCC

PATIENT
  Age: 59 Year
  Sex: Female
  Weight: 102.0593 kg

DRUGS (5)
  1. ALEVE [Suspect]
     Indication: PAIN
     Dosage: 440 MG, ONCE, ORAL
     Route: 048
     Dates: start: 20030610
  2. PROPACET 100 [Concomitant]
  3. VIOXX [Concomitant]
  4. EVISTA [Concomitant]
  5. ATENOLOL [Concomitant]

REACTIONS (10)
  - ANAPHYLACTIC SHOCK [None]
  - BLOOD PRESSURE DECREASED [None]
  - DYSPNOEA [None]
  - ERYTHEMA [None]
  - FEELING HOT [None]
  - PARAESTHESIA [None]
  - PRURITUS GENERALISED [None]
  - THROAT TIGHTNESS [None]
  - URTICARIA [None]
  - VOMITING [None]
